FAERS Safety Report 20689227 (Version 2)
Quarter: 2022Q2

REPORT INFORMATION
  Report Type: Report from Study
  Country: JP (occurrence: JP)
  Receive Date: 20220408
  Receipt Date: 20220627
  Transmission Date: 20220721
  Serious: Yes (Hospitalization)
  Sender: FDA-Public Use
  Company Number: JP-VIIV HEALTHCARE LIMITED-JP2022JPN059040

PATIENT
  Age: 0 Year
  Sex: Female

DRUGS (7)
  1. ZIDOVUDINE [Suspect]
     Active Substance: ZIDOVUDINE
     Dosage: 3 MG/KG, BID
     Route: 042
     Dates: start: 20200622, end: 20200623
  2. ZIDOVUDINE [Suspect]
     Active Substance: ZIDOVUDINE
     Dosage: 4 MG/KG, BID
     Route: 048
     Dates: start: 20200624, end: 20200719
  3. KAYTWO SYRUP [Concomitant]
     Dosage: 1 ML, QD
     Dates: start: 20200701, end: 20200701
  4. KAYTWO SYRUP [Concomitant]
     Dosage: 1 ML, QD
     Dates: start: 20200720, end: 20200720
  5. DESCOVY [Concomitant]
     Active Substance: EMTRICITABINE\TENOFOVIR ALAFENAMIDE FUMARATE
     Dosage: UNK
     Route: 064
  6. ISENTRESS [Concomitant]
     Active Substance: RALTEGRAVIR POTASSIUM
     Dosage: UNK
     Route: 064
  7. TRUVADA [Concomitant]
     Active Substance: EMTRICITABINE\TENOFOVIR DISOPROXIL FUMARATE
     Route: 064

REACTIONS (3)
  - Anaemia [Recovered/Resolved]
  - Tachypnoea [Recovered/Resolved]
  - Respiratory disorder neonatal [Recovered/Resolved]

NARRATIVE: CASE EVENT DATE: 20200622
